FAERS Safety Report 10429933 (Version 3)
Quarter: 2014Q4

REPORT INFORMATION
  Report Type: Report from Study
  Country: US (occurrence: US)
  Receive Date: 20140904
  Receipt Date: 20141017
  Transmission Date: 20150528
  Serious: Yes (Hospitalization)
  Sender: FDA-Public Use
  Company Number: US-TEVA-505993USA

PATIENT
  Age: 57 Year
  Sex: Female

DRUGS (18)
  1. COPAXONE [Suspect]
     Active Substance: GLATIRAMER ACETATE
     Dates: start: 200411
  2. ESTRADIOL. [Concomitant]
     Active Substance: ESTRADIOL
     Dosage: 0.1 MG/GM; 1/2 APPLICATORFUL AT BEDTIME
     Route: 067
     Dates: start: 20140917
  3. COPAXONE [Suspect]
     Active Substance: GLATIRAMER ACETATE
     Indication: MULTIPLE SCLEROSIS
     Dosage: 17.1429 MILLIGRAM DAILY;
     Route: 058
  4. BACLOFEN. [Concomitant]
     Active Substance: BACLOFEN
     Indication: MUSCLE SPASMS
     Dosage: 30 MILLIGRAM DAILY; AS NEEDED
     Dates: start: 20090203
  5. VITAMIN D [Concomitant]
     Active Substance: CHOLECALCIFEROL
     Dosage: 4000 IU (INTERNATIONAL UNIT) DAILY;
     Dates: start: 20100625
  6. OXYBUTYNIN [Concomitant]
     Active Substance: OXYBUTYNIN
     Dosage: 20 MILLIGRAM DAILY;
  7. TRAMADOL [Concomitant]
     Active Substance: TRAMADOL
     Dosage: 150 MILLIGRAM DAILY; AS NEEDED
     Dates: start: 20100625
  8. AQUAPHOR [Concomitant]
     Active Substance: PETROLATUM
     Dosage: AS DIRECTED
     Route: 061
  9. PROAIR HFA [Concomitant]
     Active Substance: ALBUTEROL SULFATE
     Indication: ASTHMA
     Dosage: 1 PUFF UP TO EVERY 4 HOURS AS NEEDED
     Route: 055
     Dates: start: 20140915
  10. IBUPROFEN. [Concomitant]
     Active Substance: IBUPROFEN
     Indication: PAIN
     Dosage: 2400 MILLIGRAM DAILY;
     Route: 048
     Dates: start: 20140709
  11. LIDEX [Concomitant]
     Active Substance: FLUOCINONIDE
     Dosage: AS DIRECTED
     Route: 061
  12. VERAMYST [Concomitant]
     Active Substance: FLUTICASONE FUROATE
     Dosage: 2 SPRAYS IN EACH NOSTRIL DAILY
     Route: 045
     Dates: start: 20140915
  13. FLOVENT HFA [Concomitant]
     Active Substance: FLUTICASONE PROPIONATE
     Dosage: 2 PUFFS TWICE DAILY
     Route: 055
     Dates: start: 20130606
  14. LISINOPRIL. [Concomitant]
     Active Substance: LISINOPRIL
     Dosage: 20 MILLIGRAM DAILY;
     Route: 048
     Dates: start: 20140709
  15. MULTIVITAMINS [Concomitant]
     Active Substance: VITAMINS
     Dosage: 1 TABLET DAILY;
     Dates: start: 20100625
  16. COPAXONE [Suspect]
     Active Substance: GLATIRAMER ACETATE
     Dates: start: 20020501
  17. SINGULAIR [Concomitant]
     Active Substance: MONTELUKAST SODIUM
     Dosage: 10 MILLIGRAM DAILY; AT BEDTIME
     Route: 048
     Dates: start: 20120921
  18. B COMPLETE [Concomitant]
     Dosage: 1 TABLET DAILY;
     Dates: start: 20100625

REACTIONS (3)
  - Granuloma [Recovered/Resolved]
  - Soft tissue necrosis [Unknown]
  - Thrombosis [Recovered/Resolved]

NARRATIVE: CASE EVENT DATE: 20111225
